FAERS Safety Report 8099346-8 (Version None)
Quarter: 2012Q1

REPORT INFORMATION
  Report Type: 
  Country: None (occurrence: None)
  Receive Date: 20120131
  Receipt Date: 20120124
  Transmission Date: 20120608
  Serious: Yes (Hospitalization)
  Sender: FDA-Public Use
  Company Number: AU-B.I. PHARMACEUTICALS,INC./RIDGEFIELD-2012-AU-00138AU

PATIENT
  Age: 73 Year
  Sex: Female

DRUGS (13)
  1. PRADAXA [Suspect]
     Indication: CEREBROVASCULAR ACCIDENT PROPHYLAXIS
     Dosage: 220 MG
     Dates: start: 20110901, end: 20111123
  2. RABEPRAZOLE SODIUM [Concomitant]
  3. CRESTOR [Concomitant]
  4. FOLIC ACID [Concomitant]
  5. PRADAXA [Suspect]
     Indication: ATRIAL FIBRILLATION
  6. DIGESIC [Concomitant]
  7. SYMBICORT [Concomitant]
  8. SPIRIVA [Concomitant]
  9. FUROSEMIDE [Concomitant]
  10. CYMBALTA [Concomitant]
  11. OXAZEPAM [Concomitant]
  12. METHOTREXATE [Suspect]
  13. TEGRETOL [Concomitant]

REACTIONS (1)
  - RENAL IMPAIRMENT [None]
